FAERS Safety Report 5387327-4 (Version None)
Quarter: 2007Q3

REPORT INFORMATION
  Report Type: 
  Country: None (occurrence: None)
  Receive Date: 20070716
  Receipt Date: 20070705
  Transmission Date: 20080115
  Serious: Yes (Hospitalization, Disabling)
  Sender: FDA-Public Use
  Company Number: PHBS2007AT11284

PATIENT
  Age: 43 Year
  Sex: Male

DRUGS (13)
  1. CYCLOSPORINE [Suspect]
     Indication: RENAL TRANSPLANT
     Dosage: UNK, UNK
     Route: 065
     Dates: end: 20070602
  2. CERTICAN [Suspect]
     Indication: RENAL TRANSPLANT
     Dosage: 1.5 MG, BID
     Route: 048
     Dates: start: 20070602, end: 20070630
  3. CELLCEPT [Concomitant]
     Indication: RENAL TRANSPLANT
     Dosage: 1-2 MG/DAY
     Route: 065
     Dates: start: 20040101
  4. PREDNISOLONE [Concomitant]
     Indication: RENAL TRANSPLANT
     Dosage: 5 TO 10 MG/DAY
     Route: 065
     Dates: start: 20040101
  5. ZEFFIX [Concomitant]
     Indication: HEPATITIS B
     Dosage: 100 MG/DAY
     Route: 065
     Dates: start: 20030101
  6. ZEFFIX [Concomitant]
     Dosage: 50 MG/DAY
     Route: 065
  7. LIDOPRIN FORTE [Concomitant]
     Dosage: 0.5 DF, QD
     Route: 065
     Dates: start: 20070602, end: 20070613
  8. NIFEDIPINE [Concomitant]
     Indication: HYPERTENSION
     Dosage: 10 MG, BID
     Route: 065
  9. REPRIL [Concomitant]
     Indication: HYPERTENSION
     Dosage: 5 MG, BID
     Route: 065
  10. COMBI-KALZ [Concomitant]
  11. LESCOL [Concomitant]
     Dosage: 40 MG, QD
     Route: 065
  12. ARANESP [Concomitant]
     Dosage: 60 MG EVERY TWO WEEKS
     Route: 065
  13. LACTAT ORAL [Concomitant]

REACTIONS (8)
  - BIOPSY KIDNEY ABNORMAL [None]
  - BLOOD CREATININE INCREASED [None]
  - BLOOD UREA INCREASED [None]
  - DISEASE RECURRENCE [None]
  - GLOMERULONEPHRITIS MEMBRANOPROLIFERATIVE [None]
  - OEDEMA PERIPHERAL [None]
  - PROTEINURIA [None]
  - RENAL FAILURE [None]
